FAERS Safety Report 16870144 (Version 1)
Quarter: 2019Q3

REPORT INFORMATION
  Report Type: Spontaneous
  Country: CA (occurrence: CA)
  Receive Date: 20190930
  Receipt Date: 20190930
  Transmission Date: 20191005
  Serious: Yes (Death)
  Sender: FDA-Public Use
  Company Number: CA-TEVA-2019-CA-1114576

PATIENT
  Age: 63 Year
  Sex: Male

DRUGS (5)
  1. HYDROMORPH CONTIN [Suspect]
     Active Substance: HYDROMORPHONE
     Indication: PAIN
     Route: 048
  2. QUETIAPINE. [Concomitant]
     Active Substance: QUETIAPINE
  3. HYDROMORPHONE HYDROCHLORIDE. [Suspect]
     Active Substance: HYDROMORPHONE HYDROCHLORIDE
     Indication: PAIN
     Route: 048
  4. OMEPRAZOLE. [Concomitant]
     Active Substance: OMEPRAZOLE
  5. RAMIPRIL. [Concomitant]
     Active Substance: RAMIPRIL

REACTIONS (5)
  - Confusional state [Fatal]
  - Postmortem blood drug level [Fatal]
  - Incoherent [Fatal]
  - Drug abuser [Fatal]
  - Product use issue [Fatal]
